FAERS Safety Report 13695409 (Version 1)
Quarter: 2017Q2

REPORT INFORMATION
  Report Type: Spontaneous
  Country: US (occurrence: US)
  Receive Date: 20170627
  Receipt Date: 20170627
  Transmission Date: 20170830
  Serious: Yes (Life-Threatening, Hospitalization, Other)
  Sender: FDA-Public Use
  Company Number: US-COVIS PHARMA S.A.R.L.-2017COV00025

PATIENT
  Age: 62 Year
  Sex: Male

DRUGS (1)
  1. DIGOXIN. [Suspect]
     Active Substance: DIGOXIN
     Route: 048

REACTIONS (5)
  - Acute kidney injury [Recovered/Resolved]
  - Poisoning deliberate [Unknown]
  - Toxicity to various agents [Unknown]
  - Cardiac arrest [Recovered/Resolved]
  - Ventricular hypokinesia [Recovered/Resolved]
